FAERS Safety Report 17717542 (Version 1)
Quarter: 2020Q2

REPORT INFORMATION
  Report Type: Spontaneous
  Country: US (occurrence: US)
  Receive Date: 20200427
  Receipt Date: 20200427
  Transmission Date: 20200714
  Serious: Yes (Life-Threatening, Hospitalization)
  Sender: FDA-Public Use
  Company Number: None

PATIENT
  Age: 20 Year
  Sex: Male
  Weight: 74.25 kg

DRUGS (2)
  1. KRATOM [Suspect]
     Active Substance: HERBALS\MITRAGYNINE
     Indication: ANTIDEPRESSANT THERAPY
     Route: 048
     Dates: start: 20200106, end: 20200218
  2. PROZAC [Suspect]
     Active Substance: FLUOXETINE HYDROCHLORIDE

REACTIONS (4)
  - Drug withdrawal syndrome [None]
  - Psychotic disorder [None]
  - Hanging [None]
  - Suicide attempt [None]

NARRATIVE: CASE EVENT DATE: 20200221
